FAERS Safety Report 17886746 (Version 1)
Quarter: 2020Q2

REPORT INFORMATION
  Report Type: Spontaneous
  Country: US (occurrence: US)
  Receive Date: 20200611
  Receipt Date: 20200611
  Transmission Date: 20200714
  Serious: No
  Sender: FDA-Public Use
  Company Number: US-SCILEX PHARMACEUTICALS INC.-2020SCX00020

PATIENT
  Age: 72 Year
  Sex: Female
  Weight: 65.76 kg

DRUGS (5)
  1. OXYBUTYNIN ER [Concomitant]
     Active Substance: OXYBUTYNIN
  2. ZTLIDO [Suspect]
     Active Substance: LIDOCAINE
     Indication: NECK PAIN
     Dosage: 1.8 MG, AS NEEDED, ONCE DAILY, 12 HOURS AT A TIME
     Route: 061
     Dates: start: 20200319, end: 202004
  3. LEVOTHYROXINE. [Concomitant]
     Active Substance: LEVOTHYROXINE
  4. LOSARTAN. [Concomitant]
     Active Substance: LOSARTAN
  5. ATORVASTATIN [Concomitant]
     Active Substance: ATORVASTATIN

REACTIONS (7)
  - Application site dryness [Not Recovered/Not Resolved]
  - Product administration error [Recovered/Resolved]
  - Application site scab [Not Recovered/Not Resolved]
  - Application site wound [Not Recovered/Not Resolved]
  - Product use in unapproved indication [Recovered/Resolved]
  - Application site laceration [Not Recovered/Not Resolved]
  - Product quality issue [Not Recovered/Not Resolved]

NARRATIVE: CASE EVENT DATE: 20200319
